FAERS Safety Report 6448510-X (Version None)
Quarter: 2009Q4

REPORT INFORMATION
  Report Type: 
  Country: None (occurrence: None)
  Receive Date: 20091119
  Receipt Date: 20091119
  Transmission Date: 20100525
  Serious: Yes (Hospitalization)
  Sender: FDA-Public Use
  Company Number: None

PATIENT
  Age: 63 Year
  Sex: Female
  Weight: 61.4 kg

DRUGS (33)
  1. ORAL CLOFARABINE, 1 MG, GENZYME CORP. [Suspect]
     Indication: MYELODYSPLASTIC SYNDROME
     Dosage: 1 MG, Q10D, PO
     Route: 048
     Dates: start: 20090724, end: 20090802
  2. ORAL CLOFARABINE [Suspect]
     Dosage: 1 MG, Q7D, PO
     Route: 048
     Dates: start: 20090806, end: 20090812
  3. ORAL CLOFARABINE [Suspect]
     Dosage: 1 MG, Q7D, PO
     Route: 048
     Dates: start: 20090924, end: 20090925
  4. ACTOS [Concomitant]
  5. LANTUS [Concomitant]
  6. LYRICA [Concomitant]
  7. SYNTHROID [Concomitant]
  8. PREVACID [Concomitant]
  9. METHADONE HCL [Concomitant]
  10. PERCOCET [Concomitant]
  11. DIAZEPAM [Concomitant]
  12. PAXIL [Concomitant]
  13. LASIX [Concomitant]
  14. POTASSIUM CHLORIDE [Concomitant]
  15. VAGIFEM [Concomitant]
  16. AUGMENTIN [Concomitant]
  17. SENNA [Concomitant]
  18. DOCUSATE [Concomitant]
  19. ZOFRAN [Concomitant]
  20. VALIUM [Concomitant]
  21. PARO4OTA [Concomitant]
  22. OXYCODONE HCL [Concomitant]
  23. NYSTATIN [Concomitant]
  24. MIRALAX [Concomitant]
  25. EXJADE [Concomitant]
  26. ALBUTEROL [Concomitant]
  27. NEULASTA [Concomitant]
  28. PAROXETINE [Concomitant]
  29. NEUPOGEN [Concomitant]
  30. FENTANYL-100 [Concomitant]
  31. BENADRYL [Concomitant]
  32. ARANESP [Concomitant]
  33. TYLENOL (CAPLET) [Concomitant]

REACTIONS (3)
  - CONSTIPATION [None]
  - OVARIAN ABSCESS [None]
  - PLATELET COUNT DECREASED [None]
